FAERS Safety Report 16644886 (Version 2)
Quarter: 2019Q3

REPORT INFORMATION
  Report Type: Spontaneous
  Country: US (occurrence: US)
  Receive Date: 20190729
  Receipt Date: 20190823
  Transmission Date: 20191004
  Serious: No
  Sender: FDA-Public Use
  Company Number: US-SA-2019SA198868

PATIENT
  Age: 81 Year
  Sex: Female

DRUGS (1)
  1. ALLEGRA ALLERGY [Suspect]
     Active Substance: FEXOFENADINE HYDROCHLORIDE
     Dosage: 0.5 DF, BID, HALF A PILL IN THE MORNING AND HALF A PILL AT NIGHT

REACTIONS (3)
  - Wrong technique in product usage process [Unknown]
  - Chest discomfort [Unknown]
  - Dyspnoea [Unknown]
